FAERS Safety Report 25399005 (Version 1)
Quarter: 2025Q2

REPORT INFORMATION
  Report Type: Report from Study
  Country: US (occurrence: US)
  Receive Date: 20250605
  Receipt Date: 20250605
  Transmission Date: 20250716
  Serious: Yes (Other)
  Sender: ABBVIE
  Company Number: US-ABBVIE-6303340

PATIENT
  Age: 63 Year
  Sex: Female

DRUGS (1)
  1. SKYRIZI [Suspect]
     Active Substance: RISANKIZUMAB-RZAA
     Indication: Psoriasis
     Route: 058
     Dates: start: 20230626

REACTIONS (5)
  - Skin cancer [Not Recovered/Not Resolved]
  - Skin injury [Unknown]
  - Skin disorder [Not Recovered/Not Resolved]
  - Insomnia [Not Recovered/Not Resolved]
  - Thermal burn [Unknown]

NARRATIVE: CASE EVENT DATE: 20250101
